FAERS Safety Report 5145935-X (Version None)
Quarter: 2006Q4

REPORT INFORMATION
  Report Type: 
  Country: None (occurrence: None)
  Receive Date: 20061108
  Receipt Date: 20060427
  Transmission Date: 20070319
  Serious: Yes (Disabling, Other)
  Sender: FDA-Public Use
  Company Number: 2006UW08585

PATIENT
  Age: 47 Year
  Sex: Male

DRUGS (5)
  1. ENTOCORT EC [Suspect]
     Indication: COLITIS ULCERATIVE
     Route: 048
     Dates: start: 20010104, end: 20020401
  2. VEXOL [Concomitant]
     Indication: DRY EYE
  3. VEXOL [Concomitant]
     Indication: UVEITIS
  4. SALAZOPYRIN [Concomitant]
  5. BIAXIN [Concomitant]

REACTIONS (5)
  - DRUG INEFFECTIVE [None]
  - EYE IRRITATION [None]
  - GLAUCOMA [None]
  - VISION BLURRED [None]
  - VISUAL ACUITY REDUCED [None]
